FAERS Safety Report 18729293 (Version 1)
Quarter: 2021Q1

REPORT INFORMATION
  Report Type: Spontaneous
  Country: IT (occurrence: IT)
  Receive Date: 20210112
  Receipt Date: 20210112
  Transmission Date: 20210419
  Serious: Yes (Death, Hospitalization, Other)
  Sender: FDA-Public Use
  Company Number: IT-SUN PHARMACEUTICAL INDUSTRIES LTD-2020R1-269779

PATIENT
  Age: 79 Year
  Sex: Male

DRUGS (8)
  1. ONDANSETRON [Concomitant]
     Active Substance: ONDANSETRON
     Indication: PREMEDICATION
     Dosage: UNK
     Route: 065
  2. RANITIDINE. [Concomitant]
     Active Substance: RANITIDINE
     Indication: PREMEDICATION
     Dosage: UNK
     Route: 065
  3. PACLITAXEL. [Suspect]
     Active Substance: PACLITAXEL
     Indication: TRANSITIONAL CELL CARCINOMA
  4. PACLITAXEL. [Suspect]
     Active Substance: PACLITAXEL
     Indication: CHEMOTHERAPY
     Dosage: 110 MILLIGRAM/ INFUSION ( WITH POLYOXYL 35 CASTOR OIL [CREMOPHOR EL])
     Route: 065
  5. CETIRIZINE [Suspect]
     Active Substance: CETIRIZINE HYDROCHLORIDE
     Indication: PREMEDICATION
     Dosage: UNK
     Route: 065
  6. DEXAMETHASONE SODIUM PHOSPHATE. [Suspect]
     Active Substance: DEXAMETHASONE SODIUM PHOSPHATE
     Indication: DRUG HYPERSENSITIVITY
     Dosage: UNK
     Route: 065
  7. EPINEPHRINE. [Suspect]
     Active Substance: EPINEPHRINE
     Indication: CARDIAC ARREST
     Dosage: 0.5 MILLIGRAM
     Route: 030
  8. EPINEPHRINE. [Suspect]
     Active Substance: EPINEPHRINE
     Dosage: .5 MILLIGRAM
     Route: 030

REACTIONS (9)
  - Drug ineffective [Fatal]
  - Anaphylactic reaction [Fatal]
  - Pulmonary oedema [Fatal]
  - Drug hypersensitivity [Fatal]
  - Myocardial oedema [Fatal]
  - Tryptase increased [Unknown]
  - Mast cell activation syndrome [Unknown]
  - Off label use [Unknown]
  - Cardiac arrest [Fatal]
